FAERS Safety Report 4335640-1 (Version None)
Quarter: 2004Q2

REPORT INFORMATION
  Report Type: 
  Country: None (occurrence: None)
  Receive Date: 20040409
  Receipt Date: 20040401
  Transmission Date: 20050107
  Serious: Yes (Other)
  Sender: FDA-Public Use
  Company Number: DE-ROCHE-363460

PATIENT
  Age: 40 Year
  Sex: Female
  Weight: 64 kg

DRUGS (2)
  1. ROACCUTAN [Suspect]
     Route: 048
     Dates: start: 20021008, end: 20030207
  2. ROACCUTAN [Suspect]
     Route: 048
     Dates: start: 20020806, end: 20021001

REACTIONS (4)
  - ARTHRALGIA [None]
  - COLLAGEN DISORDER [None]
  - DERMATOMYOSITIS [None]
  - LEUKOPENIA [None]
